FAERS Safety Report 5361781-6 (Version None)
Quarter: 2007Q2

REPORT INFORMATION
  Report Type: 
  Country: None (occurrence: None)
  Receive Date: 20070530
  Receipt Date: 20070313
  Transmission Date: 20071010
  Serious: No
  Sender: FDA-Public Use
  Company Number: 2007PV031613

PATIENT
  Age: 69 Year
  Sex: Male
  Weight: 149.687 kg

DRUGS (6)
  1. BYETTA [Suspect]
     Indication: DIABETES MELLITUS NON-INSULIN-DEPENDENT
     Dosage: 5 MCG;BID;SC
     Route: 058
     Dates: start: 20061101
  2. HUMULIN 70/30 [Concomitant]
  3. METFORMIN HCL [Concomitant]
  4. ACTOS [Concomitant]
  5. ASPIRIN [Concomitant]
  6. DIOVAN [Concomitant]

REACTIONS (1)
  - BLOOD GLUCOSE INCREASED [None]
